FAERS Safety Report 5701877-X (Version None)
Quarter: 2008Q2

REPORT INFORMATION
  Report Type: 
  Country: None (occurrence: None)
  Receive Date: 20080411
  Receipt Date: 20080407
  Transmission Date: 20081010
  Serious: Yes (Other)
  Sender: FDA-Public Use
  Company Number: US-BRISTOL-MYERS SQUIBB COMPANY-14068860

PATIENT
  Age: 57 Year
  Sex: Female

DRUGS (7)
  1. ABILIFY [Suspect]
     Indication: BIPOLAR DISORDER
     Route: 048
     Dates: start: 20070731
  2. CYMBALTA [Concomitant]
     Dosage: 1 DOSAGE FORM = 30 UNITS NOT SPECIFIED
  3. AMBIEN [Concomitant]
  4. TRAZODONE HCL [Concomitant]
  5. XANAX [Concomitant]
  6. LOVASTATIN [Concomitant]
  7. SYNTHROID [Concomitant]

REACTIONS (2)
  - ARTERIOSCLEROSIS CORONARY ARTERY [None]
  - TRANSIENT ISCHAEMIC ATTACK [None]
